FAERS Safety Report 10174827 (Version 1)
Quarter: 2014Q2

REPORT INFORMATION
  Report Type: Spontaneous
  Country: US (occurrence: None)
  Receive Date: 20140416
  Receipt Date: 20140416
  Transmission Date: 20141212
  Serious: Yes (Hospitalization)
  Sender: FDA-Public Use
  Company Number: 163-POMAL-13124543

PATIENT
  Age: 73 Year
  Sex: Male

DRUGS (1)
  1. POMALYST [Suspect]
     Indication: PLASMA CELL MYELOMA
     Dosage: 4 MG, 21 IN 21 D, PO?PERMANENTLY DISCONTINUED
     Route: 048
     Dates: start: 20131204

REACTIONS (4)
  - Malaise [None]
  - White blood cell count decreased [None]
  - Rash [None]
  - Infection [None]
